FAERS Safety Report 18731213 (Version 3)
Quarter: 2021Q2

REPORT INFORMATION
  Report Type: Spontaneous
  Country: US (occurrence: US)
  Receive Date: 20210112
  Receipt Date: 20210401
  Transmission Date: 20210717
  Serious: No
  Sender: FDA-Public Use
  Company Number: US-PFIZER INC-2021014668

PATIENT
  Age: 71 Year
  Sex: Female

DRUGS (1)
  1. XELJANZ XR [Suspect]
     Active Substance: TOFACITINIB CITRATE
     Dosage: 11 MG, DAILY; (XELJANZ XR 11MG, TAKE 1 TABLET DAILY)

REACTIONS (3)
  - Arthritis [Unknown]
  - SARS-CoV-2 test positive [Unknown]
  - Illness [Unknown]
